FAERS Safety Report 6246031-0 (Version None)
Quarter: 2009Q2

REPORT INFORMATION
  Report Type: 
  Country: None (occurrence: None)
  Receive Date: 20090626
  Receipt Date: 20081126
  Transmission Date: 20091009
  Serious: No
  Sender: FDA-Public Use
  Company Number: A0758539A

PATIENT
  Age: 55 Year
  Sex: Female

DRUGS (7)
  1. IMITREX [Suspect]
     Indication: MIGRAINE
     Dosage: 100MG AS REQUIRED
     Route: 048
     Dates: start: 20040101
  2. MULTI-VITAMIN [Concomitant]
  3. ADVIL [Concomitant]
  4. TESTOSTERONE + ESTRADIOL [Concomitant]
  5. PROGESTERONE [Concomitant]
  6. PROBIOTIC [Concomitant]
  7. CO Q10 [Concomitant]

REACTIONS (5)
  - DIZZINESS [None]
  - DRUG INEFFECTIVE [None]
  - MUSCULAR WEAKNESS [None]
  - SOMNOLENCE [None]
  - THROAT TIGHTNESS [None]
